FAERS Safety Report 6824505-9 (Version None)
Quarter: 2010Q3

REPORT INFORMATION
  Report Type: 
  Country: None (occurrence: None)
  Receive Date: 20100708
  Receipt Date: 20070202
  Transmission Date: 20110219
  Serious: Yes (Other)
  Sender: FDA-Public Use
  Company Number: US-PFIZER INC-2006128425

PATIENT
  Sex: Female
  Weight: 49.9 kg

DRUGS (5)
  1. CHANTIX [Suspect]
     Dates: start: 20061001, end: 20061001
  2. FOSAMAX [Concomitant]
  3. IBUPROFEN [Concomitant]
  4. TAMOXIFEN CITRATE [Concomitant]
  5. BUPROPION HCL [Concomitant]

REACTIONS (6)
  - ABDOMINAL PAIN [None]
  - DIARRHOEA [None]
  - FATIGUE [None]
  - FLATULENCE [None]
  - MALAISE [None]
  - NAUSEA [None]
